FAERS Safety Report 8975073 (Version 2)
Quarter: 2013Q1

REPORT INFORMATION
  Report Type: Spontaneous
  Country: AT (occurrence: AT)
  Receive Date: 20121219
  Receipt Date: 20130131
  Transmission Date: 20140127
  Serious: Yes (Death)
  Sender: FDA-Public Use
  Company Number: PHHY2012AT116946

PATIENT
  Sex: Male

DRUGS (7)
  1. AFINITOR [Suspect]
     Indication: PANCREATIC NEUROENDOCRINE TUMOUR
     Dosage: 10 MG/DAY
     Dates: start: 20120417
  2. DENOSUMAB [Concomitant]
  3. TRANSTEC [Concomitant]
     Dosage: 35 UG, UNK
  4. CREON [Concomitant]
  5. HALCION [Concomitant]
  6. ARANESP [Concomitant]
     Dosage: 150 MG, UNK
  7. XGEVA [Concomitant]
     Dosage: 120 MG, UNK
     Route: 058

REACTIONS (7)
  - Peritonitis bacterial [Fatal]
  - Pneumonia [Fatal]
  - Malignant neoplasm progression [Fatal]
  - Pancreatic neuroendocrine tumour [Fatal]
  - Ascites [Fatal]
  - Oedema peripheral [Unknown]
  - Fatigue [Unknown]
